FAERS Safety Report 5121149-4 (Version None)
Quarter: 2006Q4

REPORT INFORMATION
  Report Type: 
  Country: None (occurrence: None)
  Receive Date: 20061002
  Receipt Date: 20060918
  Transmission Date: 20070319
  Serious: Yes (Hospitalization)
  Sender: FDA-Public Use
  Company Number: HQWYE843018SEP06

PATIENT
  Age: 40 Year
  Sex: Female

DRUGS (1)
  1. CORDARONE [Suspect]
     Indication: ATRIAL FIBRILLATION
     Dosage: SEE  IMAGE, INTRAVENOUS
     Route: 042

REACTIONS (10)
  - ATRIAL FIBRILLATION [None]
  - CARDIAC FAILURE [None]
  - CEREBRAL INFARCTION [None]
  - DRUG EFFECT DECREASED [None]
  - HEPATIC FUNCTION ABNORMAL [None]
  - HEPATOCELLULAR DAMAGE [None]
  - MITRAL VALVE STENOSIS [None]
  - RENAL IMPAIRMENT [None]
  - RHEUMATIC HEART DISEASE [None]
  - SUFFOCATION FEELING [None]
